FAERS Safety Report 7125808-3 (Version None)
Quarter: 2010Q4

REPORT INFORMATION
  Report Type: 
  Country: None (occurrence: None)
  Receive Date: 20101129
  Receipt Date: 20101122
  Transmission Date: 20110411
  Serious: Yes (Other)
  Sender: FDA-Public Use
  Company Number: B0686359A

PATIENT
  Age: 73 Year
  Sex: Female

DRUGS (1)
  1. HYCAMTIN [Suspect]
     Dosage: 3MG CYCLIC
     Route: 048
     Dates: start: 20100101

REACTIONS (1)
  - BONE MARROW FAILURE [None]
